FAERS Safety Report 20086877 (Version 1)
Quarter: 2021Q4

REPORT INFORMATION
  Report Type: Spontaneous
  Country: CA (occurrence: CA)
  Receive Date: 20211118
  Receipt Date: 20211118
  Transmission Date: 20220303
  Serious: Yes (Other)
  Sender: FDA-Public Use
  Company Number: CA-NOVARTISPH-NVSC2021CA259360

PATIENT
  Age: 13 Year
  Sex: Female

DRUGS (2)
  1. OXCARBAZEPINE [Suspect]
     Active Substance: OXCARBAZEPINE
     Indication: Epilepsy
     Route: 065
  2. VALPROATE [Concomitant]
     Active Substance: VALPROIC ACID
     Indication: Epilepsy
     Route: 065

REACTIONS (3)
  - Seizure [Unknown]
  - Condition aggravated [Unknown]
  - Drug ineffective [Unknown]
